FAERS Safety Report 7786350-X (Version None)
Quarter: 2011Q3

REPORT INFORMATION
  Report Type: 
  Country: None (occurrence: None)
  Receive Date: 20110929
  Receipt Date: 20110921
  Transmission Date: 20111222
  Serious: Yes (Death, Other)
  Sender: FDA-Public Use
  Company Number: GB-TEVA-301790ISR

PATIENT
  Age: 20 Year
  Sex: Male

DRUGS (5)
  1. ERYTHROMYCIN [Suspect]
     Route: 065
  2. LOPERAMIDE HCL [Suspect]
     Route: 065
  3. AMOXICILLIN [Suspect]
     Route: 065
  4. ACETAMINOPHEN [Suspect]
     Route: 065
  5. FERROUS SULFATE TAB [Suspect]
     Route: 065

REACTIONS (10)
  - DEHYDRATION [None]
  - MULTIPLE DRUG OVERDOSE INTENTIONAL [None]
  - CHOLESTASIS [None]
  - OVERDOSE [None]
  - ACUTE HEPATIC FAILURE [None]
  - COMPLETED SUICIDE [None]
  - INTRACRANIAL PRESSURE INCREASED [None]
  - TOXICITY TO VARIOUS AGENTS [None]
  - BRAIN HERNIATION [None]
  - SEPSIS [None]
